FAERS Safety Report 9963225 (Version 1)
Quarter: 2014Q1

REPORT INFORMATION
  Report Type: Report from Study
  Country: US (occurrence: US)
  Receive Date: 20140305
  Receipt Date: 20140305
  Transmission Date: 20141002
  Serious: No
  Sender: FDA-Public Use
  Company Number: US-ABBVIE-13P-163-1119403-00

PATIENT
  Age: 47 Year
  Sex: Female

DRUGS (9)
  1. HUMIRA [Suspect]
     Indication: PSORIATIC ARTHROPATHY
     Dosage: STARTING DOSE
     Dates: start: 20130629
  2. METHOTREXATE [Concomitant]
     Indication: PRODUCT USED FOR UNKNOWN INDICATION
  3. FOLIC ACID [Concomitant]
     Indication: PRODUCT USED FOR UNKNOWN INDICATION
     Dosage: 1 MG 3 TABS ON SAT AND SUNDAY
  4. FOLIC ACID [Concomitant]
     Dosage: TWO TABS ON MONDAY
  5. FOLIC ACID [Concomitant]
     Dosage: 1 TAB DAILY FOR THE REST OF THE WEEK
  6. SIMVASTATIN [Concomitant]
     Indication: BLOOD CHOLESTEROL
     Dosage: 20 MD DAILY
  7. SYNTHROID [Concomitant]
     Indication: THYROID DISORDER
     Dosage: 1.25 MG DAILY
  8. BEYAZ [Concomitant]
     Indication: CONTRACEPTION
  9. NASONEX [Concomitant]
     Indication: PRODUCT USED FOR UNKNOWN INDICATION
     Dosage: 2 SPRAYS PER NOSTRIL DAILY

REACTIONS (2)
  - Device malfunction [Recovered/Resolved]
  - Wrong technique in drug usage process [Unknown]
